FAERS Safety Report 16873753 (Version 1)
Quarter: 2019Q4

REPORT INFORMATION
  Report Type: Report from Study
  Country: None (occurrence: BR)
  Receive Date: 20191001
  Receipt Date: 20191001
  Transmission Date: 20200122
  Serious: Yes (Hospitalization, Other)
  Sender: FDA-Public Use
  Company Number: BR-ABBVIE-19K-020-2827508-00

PATIENT
  Sex: Female
  Weight: 57 kg

DRUGS (4)
  1. HUMIRA [Suspect]
     Active Substance: ADALIMUMAB
     Indication: CROHN^S DISEASE
     Dosage: LOADING DOSE - WEEK 0
     Route: 058
     Dates: start: 20170612, end: 20170612
  2. HUMIRA [Suspect]
     Active Substance: ADALIMUMAB
     Route: 058
     Dates: end: 20190610
  3. AZATHIOPRINE. [Concomitant]
     Active Substance: AZATHIOPRINE
     Indication: CROHN^S DISEASE
  4. HUMIRA [Suspect]
     Active Substance: ADALIMUMAB
     Dosage: LOADING DOSE - WEEK 02
     Route: 058

REACTIONS (10)
  - Fistula [Recovered/Resolved]
  - Anaemia [Unknown]
  - Adverse event [Unknown]
  - Vaginal fistula [Recovered/Resolved]
  - Hidradenitis [Recovered/Resolved]
  - Weight increased [Not Recovered/Not Resolved]
  - Blood test abnormal [Unknown]
  - Fibrosis [Recovered/Resolved]
  - Purulence [Recovered/Resolved]
  - Memory impairment [Unknown]

NARRATIVE: CASE EVENT DATE: 2017
